FAERS Safety Report 4492715-4 (Version None)
Quarter: 2004Q4

REPORT INFORMATION
  Report Type: 
  Country: None (occurrence: None)
  Receive Date: 20041104
  Receipt Date: 20041028
  Transmission Date: 20050328
  Serious: Yes (Hospitalization)
  Sender: FDA-Public Use
  Company Number: 200420862GDDC

PATIENT
  Age: 47 Year
  Sex: Female

DRUGS (4)
  1. MERSYNDOL [Suspect]
     Indication: MIGRAINE
     Dosage: DOSE: 325/8/5 MG X 2
     Route: 048
     Dates: start: 20010101, end: 20041026
  2. VITAMIN B COMPLEX CAP [Concomitant]
     Indication: MEDICAL DIET
     Route: 048
  3. STRESSTABS [Concomitant]
     Indication: MEDICAL DIET
     Route: 048
  4. POTASSIUM [Concomitant]
     Indication: MINERAL SUPPLEMENTATION
     Route: 048
     Dates: start: 20040801

REACTIONS (1)
  - HEPATITIS [None]
